FAERS Safety Report 18414528 (Version 1)
Quarter: 2020Q4

REPORT INFORMATION
  Report Type: Spontaneous
  Country: FR (occurrence: FR)
  Receive Date: 20201022
  Receipt Date: 20201022
  Transmission Date: 20210114
  Serious: Yes (Other)
  Sender: FDA-Public Use
  Company Number: FR-TEVA-2020-FR-1839875

PATIENT
  Age: 36 Year
  Sex: Male
  Weight: 55 kg

DRUGS (13)
  1. KESTINLYO 10 MG, LYOPHILISAT ORAL [Suspect]
     Active Substance: EBASTINE
     Dosage: 20MILLIGRAM
  2. BETA CAROTENE. [Suspect]
     Active Substance: BETA CAROTENE
     Indication: CYSTIC FIBROSIS
     Dosage: 4MILLIGRAM
     Route: 048
  3. A 313 50 000 U.I., CAPSULE MOLLE [Suspect]
     Active Substance: RETINOL
     Indication: CYSTIC FIBROSIS
     Dosage: 4DOSAGEFORM
  4. INEXIUM 20 MG, COMPRIME GASTRO-RESISTANT [Suspect]
     Active Substance: ESOMEPRAZOLE
     Indication: CYSTIC FIBROSIS GASTROINTESTINAL DISEASE
     Route: 048
  5. CHLORURE DE SODIUM [Suspect]
     Active Substance: SODIUM CHLORIDE
     Indication: CYSTIC FIBROSIS
     Dosage: 3 TO 6 CAPSULES PER DAY:UNIT DOSE:500MILLIGRAM
     Route: 048
  6. AIROMIR [Suspect]
     Active Substance: ALBUTEROL SULFATE
     Indication: CYSTIC FIBROSIS LUNG
     Dosage: 2 INHALATION BEFORE AEROSOLS IF SPORT:200MICROGRAM
     Route: 055
  7. UVEDOSE 100 000 UI, SOLUTION BUVABLE EN AMPOULE [Suspect]
     Active Substance: CHOLECALCIFEROL
     Indication: CYSTIC FIBROSIS
     Dosage: 1 AMPOULE / 3 MONTHS:ORAL SOLUTION IN AMPOULE:UNIT DOSE:100000IU
     Route: 048
  8. CREON [Suspect]
     Active Substance: PANCRELIPASE AMYLASE\PANCRELIPASE LIPASE\PANCRELIPASE PROTEASE
     Indication: CYSTIC FIBROSIS PANCREATIC
     Dosage: 10-12 CAPSULES PER DAY DURING MEALS:GASTRO-RESISTANT GRANULES IN HARD CAPSULES:UNIT DOSE:12DOSAGEFOR
     Route: 048
  9. VENTOLINE [Suspect]
     Active Substance: ALBUTEROL
     Indication: CYSTIC FIBROSIS LUNG
     Dosage: 1 SCOOP PER DAY IN AEROSOL:UNIT DOSE:2.5MILLIGRAM
     Route: 055
  10. TOCO (TOCOPHERYL ACETATE) [Suspect]
     Active Substance: .ALPHA.-TOCOPHEROL ACETATE, D-
     Indication: CYSTIC FIBROSIS
     Dosage: 3 CAPSULES PER DAY DURING MEALS:UNIT DOSE:3DOSAGEFORM
     Route: 048
  11. FORADIL [Suspect]
     Active Substance: FORMOTEROL FUMARATE
     Indication: CYSTIC FIBROSIS LUNG
     Dosage: 2 CAPSULES IN INHALATION MORNING AND EVENING:UNIT DOSE:4DOSAGEFORM
     Route: 055
  12. ORKAMBI [Suspect]
     Active Substance: IVACAFTOR\LUMACAFTOR
     Indication: CYSTIC FIBROSIS
     Dosage: 200 / 125MG: 2 TABS MORNING AND EVENING:UNIT DOSE:800MILLIGRAM
     Route: 048
     Dates: start: 201602
  13. RHINOCORT [Suspect]
     Active Substance: BUDESONIDE
     Dosage: 1 SPRAY IN EACH NOSTRIL IN THE MORNING:UNIT DOSE:64MICROGRAM
     Route: 045

REACTIONS (1)
  - Oesophageal adenocarcinoma [Not Recovered/Not Resolved]

NARRATIVE: CASE EVENT DATE: 202009
